FAERS Safety Report 10048510 (Version 3)
Quarter: 2014Q3

REPORT INFORMATION
  Report Type: Spontaneous
  Country: US (occurrence: US)
  Receive Date: 20140331
  Receipt Date: 20140813
  Transmission Date: 20150326
  Serious: Yes (Hospitalization)
  Sender: FDA-Public Use
  Company Number: US-BRISTOL-MYERS SQUIBB COMPANY-20559290

PATIENT
  Age: 91 Year
  Sex: Male
  Weight: 81.63 kg

DRUGS (1)
  1. BYETTA [Suspect]
     Active Substance: EXENATIDE
     Indication: TYPE 2 DIABETES MELLITUS
     Dosage: 2 YEARS AGO
     Route: 058

REACTIONS (4)
  - Gastrolithiasis [Unknown]
  - Product quality issue [Unknown]
  - Blood glucose increased [Unknown]
  - Nausea [Unknown]
